FAERS Safety Report 10944888 (Version 1)
Quarter: 2015Q1

REPORT INFORMATION
  Report Type: Spontaneous
  Country: US (occurrence: US)
  Receive Date: 20150323
  Receipt Date: 20150323
  Transmission Date: 20150721
  Serious: No
  Sender: FDA-Public Use
  Company Number: US-TEVA-494231USA

PATIENT
  Sex: Male

DRUGS (5)
  1. LEVOTHYROXINE [Concomitant]
     Active Substance: LEVOTHYROXINE
  2. CABERGOLINE. [Suspect]
     Active Substance: CABERGOLINE
     Indication: PITUITARY TUMOUR
     Route: 048
     Dates: start: 201312
  3. CABERGOLINE. [Suspect]
     Active Substance: CABERGOLINE
     Route: 048
  4. ANDRODERM [Concomitant]
     Active Substance: TESTOSTERONE
     Route: 062
  5. CABERGOLINE. [Suspect]
     Active Substance: CABERGOLINE
     Dosage: 0.5 MG TABLET, 6 TABLETS TWICE WEEKLY
     Route: 048

REACTIONS (4)
  - Dyspnoea [Unknown]
  - Dyspnoea [Recovering/Resolving]
  - Dizziness [Recovered/Resolved]
  - Asthenia [Unknown]

NARRATIVE: CASE EVENT DATE: 201404
